FAERS Safety Report 7096424-7 (Version None)
Quarter: 2010Q4

REPORT INFORMATION
  Report Type: 
  Country: None (occurrence: None)
  Receive Date: 20101109
  Receipt Date: 20101109
  Transmission Date: 20110411
  Serious: Yes (Other)
  Sender: FDA-Public Use
  Company Number: None

PATIENT
  Age: 74 Year
  Sex: Female

DRUGS (3)
  1. SERTRALINE [Suspect]
     Indication: PANIC DISORDER
     Dosage: 25 THEN 50 MGM
     Route: 048
     Dates: start: 20100827
  2. SERTRALINE [Suspect]
     Indication: PANIC DISORDER
     Dosage: 25 THEN 50 MGM
     Route: 048
     Dates: start: 20101005
  3. XANAX [Concomitant]

REACTIONS (2)
  - AGITATION [None]
  - ANXIETY [None]
